FAERS Safety Report 17628267 (Version 1)
Quarter: 2020Q2

REPORT INFORMATION
  Report Type: Other
  Country: GB (occurrence: GB)
  Receive Date: 20200406
  Receipt Date: 20200406
  Transmission Date: 20200713
  Serious: Yes (Other)
  Sender: FDA-Public Use
  Company Number: GB-CELLTRION INC.-2020GB021184

PATIENT

DRUGS (7)
  1. ATORVASTATIN [Concomitant]
     Active Substance: ATORVASTATIN
  2. OLMESARTAN [Concomitant]
     Active Substance: OLMESARTAN
  3. RITUXIMAB (UNKNOWN) [Suspect]
     Active Substance: RITUXIMAB
     Indication: RHEUMATOID ARTHRITIS
     Dosage: 1000 MG; 293
     Route: 042
     Dates: start: 20121004, end: 20190502
  4. SULFASALAZINE. [Concomitant]
     Active Substance: SULFASALAZINE
  5. CYCLIZINE [Concomitant]
     Active Substance: CYCLIZINE
  6. STEXEROL D3 [Concomitant]
  7. ESOMEPRAZOLE. [Concomitant]
     Active Substance: ESOMEPRAZOLE MAGNESIUM

REACTIONS (6)
  - Granulomatous lymphadenitis [Unknown]
  - Renal cancer metastatic [Not Recovered/Not Resolved]
  - Metastases to lung [Unknown]
  - Metastases to bone [Unknown]
  - Metastases to chest wall [Unknown]
  - Renal mass [Unknown]

NARRATIVE: CASE EVENT DATE: 20191220
